FAERS Safety Report 4398181-1 (Version None)
Quarter: 2004Q3

REPORT INFORMATION
  Report Type: 
  Country: None (occurrence: None)
  Receive Date: 20040713
  Receipt Date: 20040625
  Transmission Date: 20050211
  Serious: No
  Sender: FDA-Public Use
  Company Number: 2004AP02855

PATIENT
  Age: 57 Year
  Sex: Female
  Weight: 120 kg

DRUGS (2)
  1. NEXIUM [Suspect]
     Dosage: 40 MG DAILY PO
     Route: 048
     Dates: start: 20040521, end: 20040523
  2. THYROXINE ^APS^ [Concomitant]

REACTIONS (4)
  - BLOOD PRESSURE INCREASED [None]
  - FACIAL PARESIS [None]
  - HEADACHE [None]
  - PARAESTHESIA [None]
